FAERS Safety Report 13663149 (Version 2)
Quarter: 2017Q3

REPORT INFORMATION
  Report Type: Report from Study
  Country: JP (occurrence: JP)
  Receive Date: 20170619
  Receipt Date: 20170710
  Transmission Date: 20171127
  Serious: Yes (Death, Hospitalization, Other)
  Sender: FDA-Public Use
  Company Number: JP-SHIRE-JP201616107AA

PATIENT
  Age: 67 Year
  Sex: Male
  Weight: 55.6 kg

DRUGS (6)
  1. HYDREA [Suspect]
     Active Substance: HYDROXYUREA
     Indication: ESSENTIAL THROMBOCYTHAEMIA
     Dosage: 500-1000 MG/DAY
     Route: 065
     Dates: start: 20081212, end: 20150601
  2. HYDREA [Suspect]
     Active Substance: HYDROXYUREA
     Dosage: 500 MG, QOD
     Route: 065
     Dates: start: 20150910, end: 2016
  3. HYDREA [Suspect]
     Active Substance: HYDROXYUREA
     Dosage: 500 MG, 1X/DAY:QD
     Route: 065
     Dates: start: 2016
  4. 422 (ANAGRELIDE) [Suspect]
     Active Substance: ANAGRELIDE
     Indication: ESSENTIAL THROMBOCYTHAEMIA
     Dosage: 1 MG/DAY
     Route: 048
     Dates: start: 20150602, end: 20150614
  5. 422 (ANAGRELIDE) [Suspect]
     Active Substance: ANAGRELIDE
     Dosage: 2 MG/DAY
     Route: 048
     Dates: start: 20150615, end: 20151201
  6. 422 (ANAGRELIDE) [Suspect]
     Active Substance: ANAGRELIDE
     Dosage: 1 MG/DAY
     Route: 048
     Dates: start: 20151202

REACTIONS (2)
  - Ventricular extrasystoles [Not Recovered/Not Resolved]
  - Pulmonary alveolar haemorrhage [Fatal]

NARRATIVE: CASE EVENT DATE: 20150609
